FAERS Safety Report 8245923-0 (Version None)
Quarter: 2012Q1

REPORT INFORMATION
  Report Type: 
  Country: None (occurrence: None)
  Receive Date: 20120328
  Receipt Date: 20120328
  Transmission Date: 20120608
  Serious: Yes (Hospitalization)
  Sender: FDA-Public Use
  Company Number: None

PATIENT
  Sex: Male
  Weight: 83.1 kg

DRUGS (1)
  1. ERBITUX [Suspect]
     Dosage: 3800 MG

REACTIONS (4)
  - OESOPHAGITIS [None]
  - RADIATION MUCOSITIS [None]
  - NAUSEA [None]
  - VOMITING [None]
